FAERS Safety Report 14196044 (Version 2)
Quarter: 2018Q1

REPORT INFORMATION
  Report Type: Spontaneous
  Country: AT (occurrence: AT)
  Receive Date: 20171116
  Receipt Date: 20180226
  Transmission Date: 20180508
  Serious: Yes (Hospitalization, Other)
  Sender: FDA-Public Use
  Company Number: AT-ABBVIE-16P-009-1632388-00

PATIENT
  Age: 68 Year
  Sex: Female

DRUGS (1)
  1. DUODOPA [Suspect]
     Active Substance: CARBIDOPA\LEVODOPA
     Indication: PARKINSON^S DISEASE
     Dosage: 16 HOUR THERAPY:?MD: 6.0 ML?CR: 1.7 ML/H?ED: 0.8 ML
     Route: 050
     Dates: start: 20160517

REACTIONS (7)
  - Peritonitis [Recovered/Resolved]
  - Nausea [Unknown]
  - Dyskinesia [Unknown]
  - Vomiting [Recovered/Resolved]
  - Pneumoperitoneum [Recovered/Resolved]
  - Abdominal rigidity [Unknown]
  - Device connection issue [Unknown]

NARRATIVE: CASE EVENT DATE: 201605
